FAERS Safety Report 23733862 (Version 1)
Quarter: 2024Q2

REPORT INFORMATION
  Report Type: Report from Study
  Country: DE (occurrence: DE)
  Receive Date: 20240412
  Receipt Date: 20240412
  Transmission Date: 20240715
  Serious: Yes (Hospitalization)
  Sender: FDA-Public Use
  Company Number: DE-ABBVIE-5713954

PATIENT
  Age: 73 Year
  Sex: Female

DRUGS (5)
  1. HUMIRA [Suspect]
     Active Substance: ADALIMUMAB
     Indication: Rheumatoid arthritis
     Route: 058
     Dates: start: 201512, end: 201612
  2. METHOTREXATE SODIUM [Concomitant]
     Active Substance: METHOTREXATE SODIUM
     Indication: Rheumatoid arthritis
     Dosage: BEFORE 01 DEC 2015
  3. METHOTREXATE SODIUM [Concomitant]
     Active Substance: METHOTREXATE SODIUM
     Indication: Rheumatoid arthritis
     Dosage: START DATE BETWEEN01DEC2015 AND01MAR2016?STOP DATE BETWEEN21JUN2018 AND17DEC2018
  4. METHOTREXATE SODIUM [Concomitant]
     Active Substance: METHOTREXATE SODIUM
     Indication: Rheumatoid arthritis
     Dosage: START DATE : BETWEEN21JUN2018 AND17DEC2018? STOP DATE : BETWEEN03DEC2019 AND16JUN2020
  5. METHOTREXATE SODIUM [Concomitant]
     Active Substance: METHOTREXATE SODIUM
     Indication: Rheumatoid arthritis
     Dosage: START DATE : BETWEEN14DEC2020 AND 15JUN2021?STOP DATE : BETWEEN05DEC2022 AND 15AUG2023

REACTIONS (3)
  - Intestinal obstruction [Recovered/Resolved]
  - Peritonitis [Recovered/Resolved]
  - Small intestine gangrene [Recovered/Resolved]

NARRATIVE: CASE EVENT DATE: 20230306
